FAERS Safety Report 8798917 (Version 1)
Quarter: 2012Q4

REPORT INFORMATION
  Report Type: 
  Country: US (occurrence: US)
  Receive Date: 20120920
  Receipt Date: 20120920
  Transmission Date: 20130627
  Serious: No
  Sender: FDA-Public Use
  Company Number: US-PFIZER INC-2012231867

PATIENT
  Sex: Female

DRUGS (3)
  1. NEURONTIN [Suspect]
     Dosage: 500 mg, daily
     Route: 048
  2. NEURONTIN [Suspect]
     Dosage: 400 mg, daily
     Route: 048
  3. NEURONTIN [Suspect]
     Dosage: 300 mg, daily
     Route: 048

REACTIONS (4)
  - Drug withdrawal syndrome [Unknown]
  - Headache [Unknown]
  - Sleep disorder [Unknown]
  - Anxiety [Unknown]
